FAERS Safety Report 5371260-8 (Version None)
Quarter: 2007Q2

REPORT INFORMATION
  Report Type: 
  Country: None (occurrence: None)
  Receive Date: 20070615
  Receipt Date: 20070312
  Transmission Date: 20071010
  Serious: Yes (Other)
  Sender: FDA-Public Use
  Company Number: 200619331US

PATIENT
  Age: 61 Year
  Sex: Male

DRUGS (7)
  1. LANTUS [Suspect]
     Indication: DIABETES MELLITUS INSULIN-DEPENDENT
     Dosage: QAM
     Dates: start: 20010101
  2. OPTICLIK [Suspect]
     Indication: DIABETES MELLITUS INSULIN-DEPENDENT
     Dates: start: 20060101
  3. APIDRA [Suspect]
     Indication: DIABETES MELLITUS INSULIN-DEPENDENT
     Dosage: AC
     Dates: start: 20060701
  4. PANTOPRAZOLE SODIUM (PROTONEX) [Concomitant]
  5. NADOLOL [Concomitant]
  6. AMYLASE, PROTEASE, LIPASE (PANGESTYME) [Concomitant]
  7. VITAMINS NOS (VITAMINS NOS) [Concomitant]

REACTIONS (5)
  - BLOOD GLUCOSE INCREASED [None]
  - DISORIENTATION [None]
  - DRUG INEFFECTIVE [None]
  - HYPERHIDROSIS [None]
  - HYPOGLYCAEMIA [None]
